FAERS Safety Report 10600404 (Version 1)
Quarter: 2014Q4

REPORT INFORMATION
  Report Type: Spontaneous
  Country: GR (occurrence: GR)
  Receive Date: 20141124
  Receipt Date: 20141124
  Transmission Date: 20150529
  Serious: Yes (Other)
  Sender: FDA-Public Use
  Company Number: GR-ROCHE-1491913

PATIENT
  Age: 37 Year
  Sex: Female

DRUGS (1)
  1. CELLCEPT [Suspect]
     Active Substance: MYCOPHENOLATE MOFETIL\MYCOPHENOLATE MOFETIL HYDROCHLORIDE
     Indication: AUTOIMMUNE HEPATITIS
     Route: 065
     Dates: end: 20141114

REACTIONS (4)
  - Dyskinesia [Unknown]
  - Product use issue [Unknown]
  - Joint dislocation [Unknown]
  - Hypoaesthesia [Unknown]
